FAERS Safety Report 8878552 (Version 1)
Quarter: 2012Q4

REPORT INFORMATION
  Report Type: 
  Country: US (occurrence: US)
  Receive Date: 20121025
  Receipt Date: 20121025
  Transmission Date: 20130627
  Serious: No
  Sender: FDA-Public Use
  Company Number: US-AMGEN-USASP2012022222

PATIENT
  Age: 50 Year
  Sex: Female
  Weight: 101.13 kg

DRUGS (9)
  1. ENBREL [Suspect]
     Indication: PSORIASIS
     Dosage: 50 mg, qwk
     Route: 058
  2. LISINOPRIL [Concomitant]
     Dosage: 2.5 mg, UNK
  3. ATORVASTATIN [Concomitant]
     Dosage: 20 mg, UNK
  4. MICROGESTIN [Concomitant]
     Dosage: UNK
  5. IBUPROFEN [Concomitant]
     Dosage: 200 mg, UNK
  6. TRAMADOL/APAP [Concomitant]
  7. ESTER C                            /00008001/ [Concomitant]
  8. VITAMIN D /00107901/ [Concomitant]
     Dosage: 400 IU, UNK
  9. TACLONEX [Concomitant]

REACTIONS (5)
  - Injection site pain [Unknown]
  - Psoriasis [Recovered/Resolved]
  - Injection site bruising [Unknown]
  - Nasopharyngitis [Unknown]
  - Vulvovaginal mycotic infection [Unknown]
